FAERS Safety Report 14683070 (Version 2)
Quarter: 2018Q2

REPORT INFORMATION
  Report Type: Spontaneous
  Country: US (occurrence: US)
  Receive Date: 20180327
  Receipt Date: 20180422
  Transmission Date: 20180711
  Serious: Yes (Hospitalization)
  Sender: FDA-Public Use
  Company Number: US-APOTEX-2017AP015578

PATIENT
  Sex: Female

DRUGS (1)
  1. SERTRALINE HYDROCHLORIDE. [Suspect]
     Active Substance: SERTRALINE HYDROCHLORIDE
     Indication: MAJOR DEPRESSION
     Dosage: 200 MG, QD
     Route: 065

REACTIONS (5)
  - Product substitution issue [Unknown]
  - Headache [Not Recovered/Not Resolved]
  - Quality of life decreased [Unknown]
  - Mood altered [Unknown]
  - Fatigue [Recovering/Resolving]
